FAERS Safety Report 12174797 (Version 2)
Quarter: 2016Q2

REPORT INFORMATION
  Report Type: Spontaneous
  Country: US (occurrence: US)
  Receive Date: 20160314
  Receipt Date: 20160622
  Transmission Date: 20160815
  Serious: Yes (Hospitalization)
  Sender: FDA-Public Use
  Company Number: US-BEH-2016059706

PATIENT
  Age: 16 Year
  Sex: Male
  Weight: 59.42 kg

DRUGS (9)
  1. HIZENTRA [Suspect]
     Active Substance: HUMAN IMMUNOGLOBULIN G
     Indication: HYPOGAMMAGLOBULINAEMIA
     Dosage: 5 G, QW
     Route: 058
     Dates: start: 20150721
  2. EPIPEN [Concomitant]
     Active Substance: EPINEPHRINE
  3. FERROUS SULFATE. [Concomitant]
     Active Substance: FERROUS SULFATE
  4. HIZENTRA [Suspect]
     Active Substance: HUMAN IMMUNOGLOBULIN G
     Indication: HUMORAL IMMUNE DEFECT
     Dosage: 8 G, QW
     Route: 058
  5. LIDOCAINE. [Concomitant]
     Active Substance: LIDOCAINE
  6. OEAN NASAL SPRAY [Concomitant]
  7. ACETAMINOPHEN. [Concomitant]
     Active Substance: ACETAMINOPHEN
  8. DIPHENHYDRAMINE. [Concomitant]
     Active Substance: DIPHENHYDRAMINE
  9. SPIRONOLACTONE. [Concomitant]
     Active Substance: SPIRONOLACTONE

REACTIONS (3)
  - Cardiac disorder [Unknown]
  - Lung disorder [Unknown]
  - Fluid retention [Unknown]

NARRATIVE: CASE EVENT DATE: 20160119
